FAERS Safety Report 8985535 (Version 1)
Quarter: 2012Q4

REPORT INFORMATION
  Report Type: 
  Country: GB (occurrence: GB)
  Receive Date: 20121226
  Receipt Date: 20121226
  Transmission Date: 20130627
  Serious: Yes (Other)
  Sender: FDA-Public Use
  Company Number: GB-JNJFOC-20121210875

PATIENT
  Sex: Male

DRUGS (2)
  1. MENS ROGAINE EXTRA STRENGTH [Suspect]
     Route: 065
  2. MENS ROGAINE EXTRA STRENGTH [Suspect]
     Indication: PRODUCT USED FOR UNKNOWN INDICATION
     Route: 065
     Dates: start: 201211, end: 20121212

REACTIONS (3)
  - Eye swelling [Unknown]
  - Visual impairment [Unknown]
  - Rash [Not Recovered/Not Resolved]
